FAERS Safety Report 22644969 (Version 1)
Quarter: 2023Q2

REPORT INFORMATION
  Report Type: Spontaneous
  Country: US (occurrence: None)
  Receive Date: 20230625
  Receipt Date: 20230625
  Transmission Date: 20230721
  Serious: Yes (Hospitalization)
  Sender: FDA-Public Use
  Company Number: None

PATIENT
  Age: 30 Year
  Sex: Male
  Weight: 83.25 kg

DRUGS (2)
  1. KESIMPTA [Suspect]
     Active Substance: OFATUMUMAB
     Indication: Multiple sclerosis
     Dosage: OTHER QUANTITY : 1 INJECTION(S);?FREQUENCY : MONTHLY;?
     Route: 058
  2. FINASTERIDE [Concomitant]
     Active Substance: FINASTERIDE

REACTIONS (6)
  - Pyrexia [None]
  - Chills [None]
  - Nausea [None]
  - Vomiting [None]
  - Pain [None]
  - Migraine [None]

NARRATIVE: CASE EVENT DATE: 20230620
